FAERS Safety Report 6242276-4 (Version None)
Quarter: 2009Q2

REPORT INFORMATION
  Report Type: 
  Country: None (occurrence: None)
  Receive Date: 20090622
  Receipt Date: 20090622
  Transmission Date: 20091009
  Serious: No
  Sender: FDA-Public Use
  Company Number: None

PATIENT

DRUGS (1)
  1. ZICAM [Suspect]
     Dates: start: 20020101, end: 20020101

REACTIONS (2)
  - ANOSMIA [None]
  - HYPOGEUSIA [None]
